FAERS Safety Report 8467995 (Version 2)
Quarter: 2013Q1

REPORT INFORMATION
  Report Type: Spontaneous
  Country: US (occurrence: US)
  Receive Date: 20120320
  Receipt Date: 20130124
  Transmission Date: 20140127
  Serious: Yes (Other)
  Sender: FDA-Public Use
  Company Number: US-US-EMD SERONO, INC.-7010596

PATIENT
  Sex: Female

DRUGS (1)
  1. REBIF [Suspect]
     Indication: MULTIPLE SCLEROSIS
     Route: 058
     Dates: start: 20070927, end: 2010

REACTIONS (8)
  - Endometriosis [Recovering/Resolving]
  - Ascites [Recovering/Resolving]
  - Hepatomegaly [Recovering/Resolving]
  - Muscle injury [Not Recovered/Not Resolved]
  - Hernia [Unknown]
  - Alpha-1 anti-trypsin increased [Unknown]
  - Hepatic enzyme increased [Recovering/Resolving]
  - Influenza like illness [Unknown]
